FAERS Safety Report 4962413-9 (Version None)
Quarter: 2006Q1

REPORT INFORMATION
  Report Type: 
  Country: None (occurrence: None)
  Receive Date: 20060329
  Receipt Date: 20060321
  Transmission Date: 20060701
  Serious: Yes (Death, Life-Threatening, Hospitalization, Other)
  Sender: FDA-Public Use
  Company Number: ZICO001212

PATIENT
  Age: 67 Year
  Sex: Male

DRUGS (3)
  1. PRIALT (ZICONOTIDE INTRATHECAL INFUSION) SOLUTION [Suspect]
     Indication: METASTATIC PAIN
     Dosage: {0.1 MCG/HR, INTRATHECAL
     Route: 037
     Dates: start: 20050415, end: 20050429
  2. DILAUDID [Concomitant]
  3. OXYCONTIN [Concomitant]

REACTIONS (5)
  - MALIGNANT NEOPLASM PROGRESSION [None]
  - METASTASES TO BONE [None]
  - PETECHIAE [None]
  - PLATELET COUNT DECREASED [None]
  - PROSTATE CANCER METASTATIC [None]
